FAERS Safety Report 4294175-5 (Version None)
Quarter: 2004Q1

REPORT INFORMATION
  Report Type: 
  Country: None (occurrence: None)
  Receive Date: 20040212
  Receipt Date: 20040212
  Transmission Date: 20041129
  Serious: No
  Sender: FDA-Public Use
  Company Number: None

PATIENT
  Sex: Male
  Weight: 110 kg

DRUGS (2)
  1. ADDERALL 20 [Suspect]
     Indication: DEPRESSION
     Dosage: 20 MG -10/10 TID ORAL
     Route: 048
     Dates: start: 20010817, end: 20040211
  2. ADDERALL 20 [Suspect]
     Indication: POST-TRAUMATIC STRESS DISORDER
     Dosage: 20 MG -10/10 TID ORAL
     Route: 048
     Dates: start: 20010817, end: 20040211

REACTIONS (1)
  - MEDICATION ERROR [None]
